FAERS Safety Report 21184994 (Version 1)
Quarter: 2022Q3

REPORT INFORMATION
  Report Type: Spontaneous
  Country: US (occurrence: US)
  Receive Date: 20220808
  Receipt Date: 20220808
  Transmission Date: 20221027
  Serious: Yes (Life-Threatening, Hospitalization, Other)
  Sender: FDA-Public Use
  Company Number: US-PFIZER INC-PV202200036726

PATIENT
  Age: 26 Year
  Sex: Male

DRUGS (3)
  1. BUPRENORPHINE [Suspect]
     Active Substance: BUPRENORPHINE
     Dosage: UNK
  2. CLONAZOLAM [Suspect]
     Active Substance: CLONAZOLAM
     Dosage: UNK
  3. FLUBROMAZOLAM [Suspect]
     Active Substance: FLUBROMAZOLAM
     Dosage: UNK

REACTIONS (5)
  - Drug abuse [Recovering/Resolving]
  - Prescription drug used without a prescription [Recovering/Resolving]
  - Accidental overdose [Recovering/Resolving]
  - Blood creatine phosphokinase increased [Recovering/Resolving]
  - Sedation [Recovering/Resolving]
